FAERS Safety Report 21952407 (Version 2)
Quarter: 2023Q1

REPORT INFORMATION
  Report Type: Spontaneous
  Country: US (occurrence: US)
  Receive Date: 20230203
  Receipt Date: 20230320
  Transmission Date: 20230418
  Serious: No
  Sender: FDA-Public Use
  Company Number: US-ALLERGAN-2302732US

PATIENT
  Sex: Female

DRUGS (5)
  1. SAPHRIS [Suspect]
     Active Substance: ASENAPINE MALEATE
     Indication: Major depression
     Dosage: UNK UNK, QD
     Route: 060
     Dates: start: 20230116
  2. SAPHRIS [Suspect]
     Active Substance: ASENAPINE MALEATE
     Indication: Obsessive-compulsive disorder
  3. Pristiq 100mg [Concomitant]
  4. Vomelo 100mg [Concomitant]
     Indication: Depression
  5. LORAZEPAM [Concomitant]
     Active Substance: LORAZEPAM
     Indication: Depression

REACTIONS (1)
  - Off label use [Unknown]
